FAERS Safety Report 21608709 (Version 1)
Quarter: 2022Q4

REPORT INFORMATION
  Report Type: Spontaneous
  Country: US (occurrence: None)
  Receive Date: 20221116
  Receipt Date: 20221116
  Transmission Date: 20230113
  Serious: Yes (Other)
  Sender: FDA-Public Use
  Company Number: None

PATIENT
  Age: 54 Year
  Sex: Female
  Weight: 65.77 kg

DRUGS (1)
  1. ROPINIROLE HYDROCHLORIDE [Suspect]
     Active Substance: ROPINIROLE HYDROCHLORIDE
     Indication: Parkinson^s disease
     Dates: start: 20221112, end: 20221115

REACTIONS (5)
  - Hyperhidrosis [None]
  - Palpitations [None]
  - Dyspnoea [None]
  - Tremor [None]
  - Vision blurred [None]

NARRATIVE: CASE EVENT DATE: 20221115
